FAERS Safety Report 14701287 (Version 12)
Quarter: 2022Q2

REPORT INFORMATION
  Report Type: Spontaneous
  Country: US (occurrence: US)
  Receive Date: 20180330
  Receipt Date: 20220614
  Transmission Date: 20220721
  Serious: Yes (Life-Threatening, Other)
  Sender: FDA-Public Use
  Company Number: PHEH2018US010330

PATIENT
  Age: 25 Year
  Sex: Male
  Weight: 61.905 kg

DRUGS (5)
  1. KYMRIAH [Suspect]
     Active Substance: TISAGENLECLEUCEL
     Indication: B-cell type acute leukaemia
     Dosage: UNK, ONCE/SINGLE (1.2 10E8 CAR-T CELLS)
     Route: 042
     Dates: start: 20171227
  2. KEPPRA [Concomitant]
     Active Substance: LEVETIRACETAM
     Indication: Product used for unknown indication
     Dosage: UNK
     Route: 065
  3. CRESEMBA [Concomitant]
     Active Substance: ISAVUCONAZONIUM SULFATE
     Indication: Product used for unknown indication
     Dosage: UNK
     Route: 065
  4. FLUDARABINE [Concomitant]
     Active Substance: FLUDARABINE PHOSPHATE
     Indication: Lymphodepletion
     Dosage: UNK
     Route: 065
     Dates: start: 20171221, end: 20171224
  5. CYCLOPHOSPHAMIDE [Concomitant]
     Active Substance: CYCLOPHOSPHAMIDE
     Indication: Lymphodepletion
     Dosage: UNK
     Route: 065
     Dates: start: 20171221, end: 20171224

REACTIONS (5)
  - Acute myelomonocytic leukaemia [Unknown]
  - Chloroma [Unknown]
  - Second primary malignancy [Unknown]
  - Transformation to acute myeloid leukaemia [Unknown]
  - Lineage switch leukaemia [Unknown]

NARRATIVE: CASE EVENT DATE: 20180309
